FAERS Safety Report 19043786 (Version 1)
Quarter: 2021Q1

REPORT INFORMATION
  Report Type: Spontaneous
  Country: US (occurrence: US)
  Receive Date: 20210323
  Receipt Date: 20210323
  Transmission Date: 20210420
  Serious: Yes (Other)
  Sender: FDA-Public Use
  Company Number: US-JNJFOC-20210246791

PATIENT
  Sex: Female

DRUGS (2)
  1. AVEENO ULTRA?CALMING DAILY MOISTURIZER SPF15 [Suspect]
     Active Substance: AVOBENZONE\OCTINOXATE\OCTISALATE
     Indication: PROPHYLAXIS AGAINST SOLAR RADIATION
  2. AVEENO ULTRA?CALMING DAILY MOISTURIZER SPF15 [Suspect]
     Active Substance: AVOBENZONE\OCTINOXATE\OCTISALATE
     Indication: ERYTHEMA
     Dosage: DIME SIZE
     Route: 061
     Dates: start: 20210219

REACTIONS (5)
  - Application site reaction [Recovering/Resolving]
  - Application site urticaria [Recovered/Resolved]
  - Application site pain [Recovered/Resolved]
  - Application site rash [Recovering/Resolving]
  - Application site swelling [Recovered/Resolved]

NARRATIVE: CASE EVENT DATE: 2021
